FAERS Safety Report 10948327 (Version 1)
Quarter: 2015Q1

REPORT INFORMATION
  Report Type: Spontaneous
  Country: US (occurrence: None)
  Receive Date: 20150225
  Receipt Date: 20150225
  Transmission Date: 20150721
  Serious: Yes (Other)
  Sender: FDA-Public Use
  Company Number: 2014-US-000608

PATIENT
  Age: 82 Year
  Sex: Male
  Weight: 79.4 kg

DRUGS (6)
  1. PRIALT [Suspect]
     Active Substance: ZICONOTIDE ACETATE
     Indication: NEUROPATHY PERIPHERAL
     Route: 037
     Dates: start: 2012, end: 2013
  2. GABAPENTIN (GABAPENTIN) [Concomitant]
     Active Substance: GABAPENTIN
  3. BACLOFEN (BACLOFEN) INJECTION [Suspect]
     Active Substance: BACLOFEN
     Indication: NEUROPATHY PERIPHERAL
     Route: 037
  4. FENTANYL (FENTANYL CITRATE) INJECTION [Suspect]
     Active Substance: FENTANYL
     Indication: NEUROPATHY PERIPHERAL
  5. MORPHINE SULFATE. [Suspect]
     Active Substance: MORPHINE SULFATE
     Indication: NEUROPATHY PERIPHERAL
     Route: 037
  6. CYMBALTA [Concomitant]
     Active Substance: DULOXETINE HYDROCHLORIDE

REACTIONS (3)
  - Hallucination, auditory [None]
  - Weight decreased [None]
  - Fatigue [None]

NARRATIVE: CASE EVENT DATE: 2012
